FAERS Safety Report 4626661-X (Version None)
Quarter: 2005Q1

REPORT INFORMATION
  Report Type: 
  Country: None (occurrence: None)
  Receive Date: 20050330
  Receipt Date: 20050317
  Transmission Date: 20050727
  Serious: Yes (Other)
  Sender: FDA-Public Use
  Company Number: 2005US000271

PATIENT
  Sex: Male

DRUGS (1)
  1. ADENOSCAN [Suspect]
     Indication: SCAN MYOCARDIAL PERFUSION
     Dosage: UNK INTRAVENOUS
     Route: 042
     Dates: start: 20040101, end: 20040101

REACTIONS (1)
  - GRAND MAL CONVULSION [None]
